FAERS Safety Report 8289855-0 (Version None)
Quarter: 2012Q2

REPORT INFORMATION
  Report Type: 
  Country: None (occurrence: None)
  Receive Date: 20120417
  Receipt Date: 20120412
  Transmission Date: 20120825
  Serious: No
  Sender: FDA-Public Use
  Company Number: US-PFIZER INC-2012091656

PATIENT
  Sex: Male
  Weight: 81.633 kg

DRUGS (2)
  1. SYNTHROID [Concomitant]
     Indication: THYROID DISORDER
     Dosage: 175 MG, 3X/DAY
  2. ADVIL CONGESTION RELIEF [Suspect]
     Indication: UPPER RESPIRATORY TRACT CONGESTION
     Dosage: 200 MG, ONCE
     Dates: start: 20120411, end: 20120412

REACTIONS (2)
  - HYPOAESTHESIA [None]
  - INSOMNIA [None]
